FAERS Safety Report 12082537 (Version 1)
Quarter: 2016Q1

REPORT INFORMATION
  Report Type: Spontaneous
  Country: CN (occurrence: CN)
  Receive Date: 20160217
  Receipt Date: 20160217
  Transmission Date: 20160526
  Serious: Yes (Hospitalization)
  Sender: FDA-Public Use
  Company Number: CN-APOTEX-2016AP006533

PATIENT
  Age: 73 Year
  Sex: Female
  Weight: 60 kg

DRUGS (2)
  1. PAXIL [Suspect]
     Active Substance: PAROXETINE HYDROCHLORIDE
     Indication: AUTONOMIC NEUROPATHY
     Dosage: 0.5 DF, QD
     Route: 048
     Dates: start: 2004, end: 201510
  2. PAROXETINE HYDROCHLORIDE. [Suspect]
     Active Substance: PAROXETINE HYDROCHLORIDE
     Indication: AUTONOMIC NEUROPATHY
     Dosage: UNK
     Route: 065
     Dates: start: 201510, end: 20160206

REACTIONS (3)
  - Foaming at mouth [Recovered/Resolved]
  - Off label use [Unknown]
  - Disease recurrence [Recovered/Resolved]

NARRATIVE: CASE EVENT DATE: 201510
